FAERS Safety Report 19951980 (Version 1)
Quarter: 2021Q4

REPORT INFORMATION
  Report Type: Spontaneous
  Country: DE (occurrence: DE)
  Receive Date: 20211013
  Receipt Date: 20211013
  Transmission Date: 20220303
  Serious: Yes (Hospitalization)
  Sender: FDA-Public Use
  Company Number: DE-ADRED-06544-01

PATIENT
  Age: 60 Year
  Sex: Male

DRUGS (4)
  1. METOPROLOL [Suspect]
     Active Substance: METOPROLOL
     Indication: Product used for unknown indication
     Dosage: UNK, FROM EMERGENCY DOCTOR
     Route: 065
  2. ASPIRIN [Suspect]
     Active Substance: ASPIRIN
     Indication: Product used for unknown indication
     Dosage: UNK, FROM EMERGENCY DOCTOR
     Route: 065
  3. HEPARIN [Suspect]
     Active Substance: HEPARIN SODIUM
     Indication: Product used for unknown indication
     Dosage: UNK, FROM EMERGENCY DOCTOR
     Route: 065
  4. RAMIPRIL/AMLODIPIN GENERICON [Concomitant]
     Dosage: 5 MILLIGRAM, QD, 1-0-0-0, TABLETTEN
     Route: 048

REACTIONS (5)
  - Dizziness [Unknown]
  - Hypersensitivity [Unknown]
  - Erythema [Unknown]
  - Hypertensive crisis [Unknown]
  - Dyspnoea [Unknown]
